FAERS Safety Report 23107963 (Version 1)
Quarter: 2023Q4

REPORT INFORMATION
  Report Type: Spontaneous
  Country: CN (occurrence: CN)
  Receive Date: 20231026
  Receipt Date: 20231026
  Transmission Date: 20240110
  Serious: Yes (Other)
  Sender: FDA-Public Use
  Company Number: CN-009507513-2310CHN009492

PATIENT
  Age: 6 Year
  Sex: Male

DRUGS (8)
  1. POSACONAZOLE [Suspect]
     Active Substance: POSACONAZOLE
     Indication: Antifungal prophylaxis
     Dosage: UNK
     Route: 048
     Dates: start: 202205
  2. VINCRISTINE [Suspect]
     Active Substance: VINCRISTINE
     Indication: Acute lymphocytic leukaemia
     Dosage: UNK
     Dates: start: 202205
  3. VINCRISTINE [Suspect]
     Active Substance: VINCRISTINE
     Dosage: UNK
     Dates: start: 20220529
  4. VINCRISTINE [Suspect]
     Active Substance: VINCRISTINE
     Dosage: UNK
     Dates: start: 20220621
  5. PIPERACILLIN SODIUM\TAZOBACTAM SODIUM [Concomitant]
     Active Substance: PIPERACILLIN SODIUM\TAZOBACTAM SODIUM
     Indication: Anti-infective therapy
     Dosage: UNK
     Dates: start: 202205
  6. DAUNORUBICIN [Concomitant]
     Active Substance: DAUNORUBICIN
     Indication: Acute lymphocytic leukaemia
     Dosage: UNK
     Dates: start: 202205
  7. PEGASPARGASE [Concomitant]
     Active Substance: PEGASPARGASE
     Indication: Acute lymphocytic leukaemia
     Dosage: UNK
     Dates: start: 202205
  8. DEXAMETHASONE [Concomitant]
     Active Substance: DEXAMETHASONE
     Indication: Acute lymphocytic leukaemia
     Dosage: UNK
     Dates: start: 202205

REACTIONS (3)
  - Posterior reversible encephalopathy syndrome [Recovering/Resolving]
  - Drug interaction [Recovering/Resolving]
  - Product administered to patient of inappropriate age [Unknown]

NARRATIVE: CASE EVENT DATE: 20220501
